FAERS Safety Report 7462915-X (Version None)
Quarter: 2011Q2

REPORT INFORMATION
  Report Type: 
  Country: None (occurrence: None)
  Receive Date: 20110506
  Receipt Date: 20110406
  Transmission Date: 20111010
  Serious: Yes (Hospitalization, Other)
  Sender: FDA-Public Use
  Company Number: US-BAYER-201037691NA

PATIENT
  Age: 16 Year
  Sex: Female
  Weight: 58.957 kg

DRUGS (5)
  1. YASMIN [Suspect]
     Indication: ACNE
  2. DROSPIRENONE AND ETHINYL ESTRADIOL [Suspect]
     Indication: ACNE
  3. YAZ [Suspect]
     Indication: CONTRACEPTION
  4. ALBUTEROL [Concomitant]
     Indication: ASTHMA
     Dosage: 2 PUFF(S), PRN
  5. YAZ [Suspect]
     Indication: ACNE
     Dosage: UNK UNK, QD
     Route: 048
     Dates: start: 20070101

REACTIONS (5)
  - PAIN [None]
  - PULMONARY THROMBOSIS [None]
  - THROMBOSIS [None]
  - INJURY [None]
  - PULMONARY EMBOLISM [None]
